FAERS Safety Report 15671779 (Version 1)
Quarter: 2018Q4

REPORT INFORMATION
  Report Type: Report from Study
  Country: US (occurrence: US)
  Receive Date: 20181129
  Receipt Date: 20181129
  Transmission Date: 20190205
  Serious: Yes (Other)
  Sender: FDA-Public Use
  Company Number: US-TESARO, INC-US-2018TSO01579

PATIENT
  Sex: Female

DRUGS (17)
  1. AKYNZEO [Concomitant]
     Active Substance: NETUPITANT\PALONOSETRON HYDROCHLORIDE
     Indication: ANTIEMETIC SUPPORTIVE CARE
     Dosage: 300-0.5 MG, ONE HOUR PRIOR TO START OF CHEMOTHERAPY
     Route: 048
  2. IRBESARTAN. [Concomitant]
     Active Substance: IRBESARTAN
     Indication: PRODUCT USE IN UNAPPROVED INDICATION
     Dosage: 75 MG, QD
     Route: 048
  3. ZOLPIDEM [Concomitant]
     Active Substance: ZOLPIDEM\ZOLPIDEM TARTRATE
     Indication: PRODUCT USE IN UNAPPROVED INDICATION
     Dosage: 5 MG, QD
     Route: 048
  4. ZEJULA [Suspect]
     Active Substance: NIRAPARIB
     Indication: OVARIAN CANCER
     Dosage: 300 MG, QD
     Route: 048
     Dates: start: 20180119
  5. PROBIOTICS NOS [Concomitant]
     Active Substance: PROBIOTICS NOS
     Indication: PRODUCT USE IN UNAPPROVED INDICATION
     Dosage: UNK
  6. SENOKOT [Concomitant]
     Active Substance: SENNOSIDES
     Indication: PRODUCT USE IN UNAPPROVED INDICATION
     Dosage: 8.6 MG, UNK
     Route: 048
  7. FAMOTIDINE. [Concomitant]
     Active Substance: FAMOTIDINE
     Indication: PRODUCT USE IN UNAPPROVED INDICATION
     Dosage: 20 MG, QD
     Route: 048
  8. ASCORBIC ACID. [Concomitant]
     Active Substance: ASCORBIC ACID
     Indication: PRODUCT USE IN UNAPPROVED INDICATION
     Dosage: UNK
     Route: 048
  9. GLYCERIN ADULT [Concomitant]
     Active Substance: GLYCERIN
     Indication: PRODUCT USE IN UNAPPROVED INDICATION
     Dosage: 1 DF, PRN
     Route: 054
  10. VITAMIN D [Concomitant]
     Active Substance: CHOLECALCIFEROL
     Indication: PRODUCT USE IN UNAPPROVED INDICATION
     Dosage: 2000 UNIT, UNK
     Route: 048
  11. ZEJULA [Suspect]
     Active Substance: NIRAPARIB
     Dosage: 100 MG, QD
     Route: 048
     Dates: end: 20180419
  12. ATIVAN [Concomitant]
     Active Substance: LORAZEPAM
     Indication: VOMITING
  13. DEXAMETHASONE. [Concomitant]
     Active Substance: DEXAMETHASONE
     Indication: PRODUCT USED FOR UNKNOWN INDICATION
     Dosage: 12 MG, ON DAY 1 OF TREATMENT
     Route: 048
  14. MAGNESIUM CITRATE. [Concomitant]
     Active Substance: MAGNESIUM CITRATE
     Indication: PRODUCT USE IN UNAPPROVED INDICATION
     Dosage: 150 QHS, QD
     Route: 048
  15. ATIVAN [Concomitant]
     Active Substance: LORAZEPAM
     Indication: NAUSEA
     Dosage: 0.5 MG, PRN
     Route: 048
  16. MELATONIN [Concomitant]
     Active Substance: MELATONIN
     Indication: PRODUCT USE IN UNAPPROVED INDICATION
     Dosage: 10 MG, HS
     Route: 048
  17. VITAMIN B COMPLEX [Concomitant]
     Active Substance: CYANOCOBALAMIN\DEXPANTHENOL\NIACINAMIDE\PYRIDOXINE HYDROCHLORIDE\RIBOFLAVIN 5^-PHOSPHATE SODIUM\THIAMINE HYDROCHLORIDE\VITAMIN B COMPLEX
     Indication: PRODUCT USE IN UNAPPROVED INDICATION
     Dosage: UNK
     Route: 048

REACTIONS (2)
  - Bronchitis [Unknown]
  - Disease progression [Unknown]
